FAERS Safety Report 4695440-X (Version None)
Quarter: 2005Q2

REPORT INFORMATION
  Report Type: 
  Country: None (occurrence: None)
  Receive Date: 20050617
  Receipt Date: 20050617
  Transmission Date: 20051028
  Serious: Yes (Other)
  Sender: FDA-Public Use
  Company Number: None

PATIENT
  Sex: Male
  Weight: 109.3 kg

DRUGS (12)
  1. SIMVASTATIN [Suspect]
  2. HYDROCODONE 5/ ACETAMINOPHEN [Concomitant]
  3. DILTIAZEM (INWOOD) [Concomitant]
  4. GABAPENTIN [Concomitant]
  5. GEMFIBROZIL [Concomitant]
  6. LEVOTHYOXINE NA (SYNTHROID) [Concomitant]
  7. NICAIN [Concomitant]
  8. PRAMIPEXOLE DIHYDROCHLORIDE [Concomitant]
  9. SIMVASTATIN [Concomitant]
  10. IRBESARTAN [Concomitant]
  11. METOPROLOL TARTRATE [Concomitant]
  12. EPIPEN [Concomitant]

REACTIONS (1)
  - MYALGIA [None]
